FAERS Safety Report 11618880 (Version 2)
Quarter: 2015Q4

REPORT INFORMATION
  Report Type: Spontaneous
  Country: CA (occurrence: CA)
  Receive Date: 20151012
  Receipt Date: 20151028
  Transmission Date: 20160304
  Serious: Yes (Death, Hospitalization, Other)
  Sender: FDA-Public Use
  Company Number: CA-ABBVIE-15P-028-1478443-00

PATIENT
  Sex: Male
  Weight: 80 kg

DRUGS (2)
  1. DEPACON [Suspect]
     Active Substance: VALPROATE SODIUM
     Route: 042
     Dates: start: 20151002, end: 20151005
  2. DEPACON [Suspect]
     Active Substance: VALPROATE SODIUM
     Indication: STATUS EPILEPTICUS
     Dosage: STAT
     Route: 042
     Dates: start: 20151002, end: 20151005

REACTIONS (10)
  - Juvenile idiopathic arthritis [Unknown]
  - Hypoxic-ischaemic encephalopathy [Unknown]
  - Cerebrovascular accident [Unknown]
  - Pneumonia [Unknown]
  - Multi-organ failure [Fatal]
  - Pancreatitis haemorrhagic [Unknown]
  - Acute respiratory distress syndrome [Unknown]
  - Septic shock [Unknown]
  - Hypertriglyceridaemia [Unknown]
  - Abdominal compartment syndrome [Unknown]
